FAERS Safety Report 24654872 (Version 1)
Quarter: 2024Q4

REPORT INFORMATION
  Report Type: Report from Study
  Country: US (occurrence: US)
  Receive Date: 20241122
  Receipt Date: 20241122
  Transmission Date: 20250115
  Serious: Yes (Other)
  Sender: ALEXION PHARMACEUTICALS
  Company Number: 202411USA017550US

PATIENT

DRUGS (6)
  1. STRENSIQ [Suspect]
     Active Substance: ASFOTASE ALFA
     Dosage: UNK
     Route: 065
  2. STRENSIQ [Suspect]
     Active Substance: ASFOTASE ALFA
     Dosage: UNK
  3. STRENSIQ [Suspect]
     Active Substance: ASFOTASE ALFA
     Dosage: UNK
     Route: 065
  4. STRENSIQ [Suspect]
     Active Substance: ASFOTASE ALFA
     Dosage: UNK
  5. ZYRTEC [Concomitant]
     Active Substance: CETIRIZINE HYDROCHLORIDE
     Dosage: UNK
  6. ZYRTEC [Concomitant]
     Active Substance: CETIRIZINE HYDROCHLORIDE
     Dosage: UNK
     Route: 065

REACTIONS (14)
  - Injection site erythema [Unknown]
  - Injection site induration [Unknown]
  - Injection site discomfort [Unknown]
  - Bone pain [Unknown]
  - Dental caries [Unknown]
  - Scoliosis [Unknown]
  - Vitamin B6 increased [Unknown]
  - Abdominal pain [Unknown]
  - Constipation [Unknown]
  - Separation anxiety disorder [Unknown]
  - Dehydration [Unknown]
  - Blood pressure increased [Unknown]
  - Heart rate increased [Unknown]
  - Treatment noncompliance [Unknown]
